FAERS Safety Report 16652354 (Version 1)
Quarter: 2019Q3

REPORT INFORMATION
  Report Type: Spontaneous
  Country: CA (occurrence: CA)
  Receive Date: 20190731
  Receipt Date: 20190731
  Transmission Date: 20191004
  Serious: Yes (Hospitalization, Disabling, Other)
  Sender: FDA-Public Use
  Company Number: CA-JNJFOC-20190740604

PATIENT
  Age: 89 Year
  Sex: Female

DRUGS (9)
  1. HEPARIN SODIUM. [Suspect]
     Active Substance: HEPARIN SODIUM
     Indication: THROMBOSIS PROPHYLAXIS
     Dosage: UNK, BID
     Route: 058
  2. EPINEPHRINE. [Concomitant]
     Active Substance: EPINEPHRINE
     Dosage: UNK
  3. HYDROMORPHONE [Concomitant]
     Active Substance: HYDROMORPHONE
     Dosage: UNK
  4. RIVAROXABAN [Suspect]
     Active Substance: RIVAROXABAN
     Indication: CEREBROVASCULAR ACCIDENT PROPHYLAXIS
     Dosage: 15.0 MG, QD
     Route: 048
  5. LIDOCAINE. [Concomitant]
     Active Substance: LIDOCAINE
     Dosage: 3.0 ML
     Route: 061
  6. HEPARIN SODIUM. [Suspect]
     Active Substance: HEPARIN SODIUM
     Indication: EMBOLISM VENOUS
  7. ESCITALOPRAM [Suspect]
     Active Substance: ESCITALOPRAM OXALATE
     Indication: PRODUCT USED FOR UNKNOWN INDICATION
     Dosage: UNK
     Route: 065
  8. BUPIVACAINE. [Concomitant]
     Active Substance: BUPIVACAINE
     Dosage: UNK
  9. RIVAROXABAN [Suspect]
     Active Substance: RIVAROXABAN
     Indication: ATRIAL FIBRILLATION

REACTIONS (11)
  - Extradural haematoma [Recovering/Resolving]
  - Spinal cord oedema [Recovering/Resolving]
  - Haemorrhage [Recovering/Resolving]
  - Platelet count decreased [Recovering/Resolving]
  - Paralysis [Recovering/Resolving]
  - Spinal cord compression [Recovering/Resolving]
  - Hypotension [Recovering/Resolving]
  - Oedema [Recovering/Resolving]
  - Motor dysfunction [Recovering/Resolving]
  - Platelet aggregation inhibition [Recovering/Resolving]
  - Hypovolaemia [Recovering/Resolving]
